FAERS Safety Report 7861468-1 (Version None)
Quarter: 2011Q4

REPORT INFORMATION
  Report Type: 
  Country: None (occurrence: None)
  Receive Date: 20111027
  Receipt Date: 20111024
  Transmission Date: 20120403
  Serious: Yes (Hospitalization, Other)
  Sender: FDA-Public Use
  Company Number: US-PFIZER INC-2011152910

PATIENT
  Sex: Female

DRUGS (1)
  1. CHANTIX [Suspect]
     Indication: SMOKING CESSATION THERAPY
     Dosage: UNK

REACTIONS (9)
  - LOSS OF CONSCIOUSNESS [None]
  - DEPRESSION [None]
  - CONCUSSION [None]
  - NIGHTMARE [None]
  - INTENTIONAL OVERDOSE [None]
  - NERVE INJURY [None]
  - SCAR [None]
  - SUICIDE ATTEMPT [None]
  - ANXIETY [None]
